FAERS Safety Report 8025711-0 (Version None)
Quarter: 2012Q1

REPORT INFORMATION
  Report Type: 
  Country: None (occurrence: None)
  Receive Date: 20120105
  Receipt Date: 20110810
  Transmission Date: 20120608
  Serious: No
  Sender: FDA-Public Use
  Company Number: PR-ABBOTT-11P-131-0843464-00

PATIENT
  Sex: Female
  Weight: 78.542 kg

DRUGS (3)
  1. SYNTHROID [Suspect]
     Indication: HYPOTHYROIDISM
     Route: 048
     Dates: end: 20110601
  2. CYTOMEL [Suspect]
     Indication: HYPOTHYROIDISM
     Route: 048
     Dates: end: 20110601
  3. TRAMADOL HCL [Concomitant]
     Indication: PRODUCT USED FOR UNKNOWN INDICATION
     Route: 048

REACTIONS (9)
  - FATIGUE [None]
  - BLOOD GLUCOSE INCREASED [None]
  - WEIGHT LOSS POOR [None]
  - HEADACHE [None]
  - DYSPEPSIA [None]
  - PRODUCT PHYSICAL ISSUE [None]
  - DYSPNOEA [None]
  - WEIGHT INCREASED [None]
  - CONSTIPATION [None]
